FAERS Safety Report 8401993-8 (Version None)
Quarter: 2012Q2

REPORT INFORMATION
  Report Type: 
  Country: None (occurrence: None)
  Receive Date: 20120601
  Receipt Date: 20120529
  Transmission Date: 20120825
  Serious: Yes (Other)
  Sender: FDA-Public Use
  Company Number: DE-PFIZER INC-2012128650

PATIENT
  Age: 70 Year
  Sex: Female
  Weight: 70 kg

DRUGS (1)
  1. INSPRA [Suspect]
     Dosage: 50 MG, UNK
     Dates: start: 20110101

REACTIONS (2)
  - COR PULMONALE [None]
  - PLEURAL EFFUSION [None]
